FAERS Safety Report 11640007 (Version 3)
Quarter: 2015Q4

REPORT INFORMATION
  Report Type: Spontaneous
  Country: US (occurrence: US)
  Receive Date: 20151019
  Receipt Date: 20151105
  Transmission Date: 20160304
  Serious: No
  Sender: FDA-Public Use
  Company Number: US-PFIZER INC-2015334264

PATIENT
  Sex: Female

DRUGS (2)
  1. ADVIL [Suspect]
     Active Substance: IBUPROFEN
     Indication: MUSCULOSKELETAL PAIN
     Dosage: 2 DF, UNK
  2. ADVIL [Suspect]
     Active Substance: IBUPROFEN
     Dosage: 400 MG, DAILY (2X200 MG A DAY)
     Dates: start: 20150923, end: 2015

REACTIONS (3)
  - Reaction to drug excipients [Unknown]
  - Dyspepsia [Recovered/Resolved]
  - Product coating issue [Unknown]

NARRATIVE: CASE EVENT DATE: 20150923
